FAERS Safety Report 18146501 (Version 3)
Quarter: 2020Q4

REPORT INFORMATION
  Report Type: Spontaneous
  Country: FR (occurrence: FR)
  Receive Date: 20200813
  Receipt Date: 20201006
  Transmission Date: 20210113
  Serious: No
  Sender: FDA-Public Use
  Company Number: FR-JNJFOC-20200735524

PATIENT
  Sex: Female

DRUGS (3)
  1. DUROGESIC [Suspect]
     Active Substance: FENTANYL
  2. DUROGESIC [Suspect]
     Active Substance: FENTANYL
     Indication: PRODUCT USED FOR UNKNOWN INDICATION
     Dosage: 75 UG
     Route: 062
  3. DUROGESIC [Suspect]
     Active Substance: FENTANYL

REACTIONS (9)
  - Hyperhidrosis [Unknown]
  - Feeling cold [Unknown]
  - Pain [Unknown]
  - Product physical issue [Unknown]
  - Feeling hot [Unknown]
  - Muscle tightness [Unknown]
  - Tremor [Unknown]
  - Product quality issue [Unknown]
  - Drug ineffective [Unknown]
